FAERS Safety Report 6733069-X (Version None)
Quarter: 2010Q2

REPORT INFORMATION
  Report Type: 
  Country: None (occurrence: None)
  Receive Date: 20100518
  Receipt Date: 20100503
  Transmission Date: 20101027
  Serious: Yes (Death, Hospitalization)
  Sender: FDA-Public Use
  Company Number: 2010AL002702

PATIENT
  Age: 62 Year
  Sex: Female

DRUGS (7)
  1. METFORMIN HCL [Suspect]
     Indication: DIABETES MELLITUS
     Dosage: 850 MG TID; PO
     Route: 048
     Dates: start: 20050101
  2. PROPAVAN [Concomitant]
  3. ANAFRANIL [Concomitant]
  4. NORMORIX [Concomitant]
  5. SIMVASTATIN [Concomitant]
  6. TENORMIN [Concomitant]
  7. IMOVANE [Concomitant]

REACTIONS (9)
  - ACIDOSIS [None]
  - ALCOHOL USE [None]
  - BLOOD CREATININE INCREASED [None]
  - BLOOD SODIUM DECREASED [None]
  - CYANOSIS [None]
  - ELECTROLYTE IMBALANCE [None]
  - HYPERKALAEMIA [None]
  - LOSS OF CONSCIOUSNESS [None]
  - PNEUMONIA [None]
